FAERS Safety Report 4852561-6 (Version None)
Quarter: 2005Q4

REPORT INFORMATION
  Report Type: 
  Country: None (occurrence: None)
  Receive Date: 20051123
  Receipt Date: 20050801
  Transmission Date: 20060501
  Serious: Yes (Hospitalization)
  Sender: FDA-Public Use
  Company Number: 05USA0159

PATIENT
  Age: 50 Year
  Sex: Male

DRUGS (6)
  1. GLIADEL [Suspect]
     Indication: GLIOBLASTOMA MULTIFORME
     Dosage: 7.7 MG/WAFER; 5 1/2 WAFERS
     Dates: start: 20050524
  2. COUMADIN [Concomitant]
  3. DILANTIN [Concomitant]
  4. TEMOZOLOMIDE [Concomitant]
  5. DEXAMETHASONE [Concomitant]
  6. ACTOS [Concomitant]

REACTIONS (2)
  - BRAIN OEDEMA [None]
  - FALL [None]
